FAERS Safety Report 13238160 (Version 1)
Quarter: 2017Q1

REPORT INFORMATION
  Report Type: Spontaneous
  Country: US (occurrence: US)
  Receive Date: 20170215
  Receipt Date: 20170215
  Transmission Date: 20170428
  Serious: No
  Sender: FDA-Public Use
  Company Number: None

PATIENT
  Age: 42 Year
  Sex: Female

DRUGS (7)
  1. ADVIL [Concomitant]
     Active Substance: IBUPROFEN
  2. TROPIUM [Concomitant]
  3. GABAPENTIN. [Concomitant]
     Active Substance: GABAPENTIN
  4. AMPYRA [Concomitant]
     Active Substance: DALFAMPRIDINE
  5. GILENYA [Suspect]
     Active Substance: FINGOLIMOD HYDROCHLORIDE
     Indication: MULTIPLE SCLEROSIS
     Route: 048
     Dates: start: 20110428
  6. BACLOFEN. [Concomitant]
     Active Substance: BACLOFEN
  7. AMANTIDINE [Concomitant]
     Active Substance: AMANTADINE

REACTIONS (2)
  - Fall [None]
  - Drug dose omission [None]
